FAERS Safety Report 15816583 (Version 1)
Quarter: 2019Q1

REPORT INFORMATION
  Report Type: Spontaneous
  Country: FR (occurrence: FR)
  Receive Date: 20190113
  Receipt Date: 20190113
  Transmission Date: 20190417
  Serious: Yes (Death, Other)
  Sender: FDA-Public Use
  Company Number: FR-ZYDUS-032511

PATIENT
  Age: 91 Year
  Sex: Male

DRUGS (3)
  1. VOLTARENE (DICLOFENAC SODIUM) [Suspect]
     Active Substance: DICLOFENAC SODIUM
     Indication: ARTHRITIS
     Dosage: UNK ()
     Route: 048
     Dates: start: 20170517, end: 20170518
  2. GLUCOSE [Concomitant]
     Active Substance: DEXTROSE
     Dosage: DOSE: 30 PERCENT
     Dates: start: 20170518
  3. METFORMIN [Suspect]
     Active Substance: METFORMIN HYDROCHLORIDE
     Indication: TYPE 2 DIABETES MELLITUS
     Route: 048

REACTIONS (2)
  - Lactic acidosis [Fatal]
  - Coma [Fatal]

NARRATIVE: CASE EVENT DATE: 20170518
